FAERS Safety Report 10313228 (Version 1)
Quarter: 2014Q3

REPORT INFORMATION
  Report Type: Spontaneous
  Country: US (occurrence: None)
  Receive Date: 20140716
  Receipt Date: 20140716
  Transmission Date: 20150326
  Serious: Yes (Death, Life-Threatening, Hospitalization)
  Sender: FDA-Public Use
  Company Number: 2014CVI00017

PATIENT
  Sex: Male
  Weight: 79.8 kg

DRUGS (8)
  1. MIDAZOLAM MALEATE [Concomitant]
     Active Substance: MIDAZOLAM MALEATE
  2. CEFUROXIME (CEFUROXIME) [Suspect]
     Active Substance: CEFUROXIME
     Indication: INFECTION PROPHYLAXIS
     Route: 042
     Dates: start: 19901113, end: 19901113
  3. MORPHINE [Concomitant]
     Active Substance: MORPHINE
  4. CIMETIDINE [Concomitant]
     Active Substance: CIMETIDINE
  5. FENTANYL CITRATE. [Concomitant]
     Active Substance: FENTANYL CITRATE
  6. HYDROXYZINE HYDROCHLORIDE. [Concomitant]
     Active Substance: HYDROXYZINE HYDROCHLORIDE
  7. PANCURONIUM BROMIDE. [Concomitant]
     Active Substance: PANCURONIUM BROMIDE
  8. HYOSCINE HYDROBROMIDE [Concomitant]
     Active Substance: SCOPOLAMINE

REACTIONS (3)
  - Anaphylactic shock [None]
  - Staphylococcal sepsis [None]
  - Atrial fibrillation [None]

NARRATIVE: CASE EVENT DATE: 19901113
